FAERS Safety Report 14588156 (Version 1)
Quarter: 2018Q1

REPORT INFORMATION
  Report Type: Spontaneous
  Country: PT (occurrence: PT)
  Receive Date: 20180301
  Receipt Date: 20180301
  Transmission Date: 20180509
  Serious: Yes (Other)
  Sender: FDA-Public Use
  Company Number: PT-TEVA-2018-PT-856666

PATIENT
  Age: 57 Year
  Sex: Male

DRUGS (4)
  1. ?CIDO VALPROICO RATIOPHARM 500MG [Suspect]
     Active Substance: VALPROIC ACID
     Route: 065
  2. TAMSULOSIN [Concomitant]
     Active Substance: TAMSULOSIN
     Route: 048
  3. TAMSULOSIN [Concomitant]
     Active Substance: TAMSULOSIN
  4. ?CIDO VALPROICO RATIOPHARM 500MG [Suspect]
     Active Substance: VALPROIC ACID
     Dosage: 1000 MILLIGRAM DAILY; 1 CAPSULE MORNING AND 1 CAPSULE AT DINNER
     Route: 048
     Dates: start: 2002

REACTIONS (3)
  - Epilepsy [Recovered/Resolved]
  - Product quality issue [Unknown]
  - Drug level decreased [Unknown]
